FAERS Safety Report 15093708 (Version 2)
Quarter: 2018Q3

REPORT INFORMATION
  Report Type: Other
  Country: CN (occurrence: CN)
  Receive Date: 20180629
  Receipt Date: 20180706
  Transmission Date: 20181010
  Serious: Yes (Hospitalization)
  Sender: FDA-Public Use
  Company Number: CN-ACTELION-A-US2018-174484

PATIENT
  Age: 26 Year
  Sex: Female

DRUGS (8)
  1. NADROPARIN CALCIUM [Concomitant]
     Active Substance: NADROPARIN CALCIUM
  2. ROPIVACAINE [Concomitant]
     Active Substance: ROPIVACAINE
  3. VENTAVIS [Suspect]
     Active Substance: ILOPROST
     Indication: PULMONARY ARTERIAL HYPERTENSION
     Dosage: UNK
     Route: 055
  4. SILDENAFIL. [Suspect]
     Active Substance: SILDENAFIL
     Dosage: 75 MG, UNK
     Route: 048
  5. WARFARIN [Concomitant]
     Active Substance: WARFARIN
  6. LIDOCAINE. [Concomitant]
     Active Substance: LIDOCAINE
  7. SILDENAFIL. [Suspect]
     Active Substance: SILDENAFIL
     Indication: PULMONARY ARTERIAL HYPERTENSION
     Dosage: 3.75 MG, QD
     Route: 048
  8. OXYTOCIN. [Concomitant]
     Active Substance: OXYTOCIN

REACTIONS (4)
  - Pregnancy [Unknown]
  - Caesarean section [Unknown]
  - Procedural hypotension [Unknown]
  - Premature delivery [Unknown]
